FAERS Safety Report 21594231 (Version 1)
Quarter: 2022Q4

REPORT INFORMATION
  Report Type: Spontaneous
  Country: DE (occurrence: DE)
  Receive Date: 20221115
  Receipt Date: 20221115
  Transmission Date: 20230113
  Serious: Yes (Hospitalization)
  Sender: FDA-Public Use
  Company Number: DE-ADRED-08026-01

PATIENT
  Age: 77 Year
  Sex: Female
  Weight: 66 kg

DRUGS (10)
  1. CISPLATIN [Suspect]
     Active Substance: CISPLATIN
     Indication: Product used for unknown indication
     Dosage: NK
     Route: 042
  2. ETOPOSIDE [Suspect]
     Active Substance: ETOPOSIDE
     Indication: Product used for unknown indication
     Dosage: NK
     Route: 042
  3. METAMIZOLE [Concomitant]
     Active Substance: METAMIZOLE
     Dosage: 500 MILLIGRAM, QID (500 MG, 1-1-1-1, TABLET)
     Route: 048
  4. CANDESARTAN CILEXETIL\HYDROCHLOROTHIAZIDE [Concomitant]
     Active Substance: CANDESARTAN CILEXETIL\HYDROCHLOROTHIAZIDE
     Dosage: QD (16|12.5 MG, 1-0-0-0, TABLET)
     Route: 048
  5. LIPEGFILGRASTIM [Concomitant]
     Active Substance: LIPEGFILGRASTIM
     Dosage: NK
     Route: 065
  6. NALOXONE HYDROCHLORIDE\TILIDINE HYDROCHLORIDE [Concomitant]
     Active Substance: NALOXONE HYDROCHLORIDE\TILIDINE HYDROCHLORIDE
     Dosage: TID (4|50 MG, 1-1-1-0, RETARD TABLETS)
     Route: 048
  7. CODEINE [Concomitant]
     Active Substance: CODEINE
     Dosage: 16 MG/G, 10-10-10-0, DROPS
     Route: 048
  8. FORMOTEROL [Concomitant]
     Active Substance: FORMOTEROL
     Dosage: 12 MICROGRAM, BID (12 ?G, 1-0-1-0, CAPSULE)
  9. AMLODIPINE [Concomitant]
     Active Substance: AMLODIPINE BESYLATE
     Dosage: 10 MILLIGRAM, QD (10 MG, 0-0-1-0, TABLET)
     Route: 048
  10. BUDESONIDE [Concomitant]
     Active Substance: BUDESONIDE
     Dosage: 400 ?G, 1-0-1-0, POWDER INHALER

REACTIONS (5)
  - Musculoskeletal pain [Unknown]
  - Weight decreased [Unknown]
  - Dysphagia [Unknown]
  - General physical health deterioration [Unknown]
  - C-reactive protein increased [Unknown]
